FAERS Safety Report 5928972-4 (Version None)
Quarter: 2008Q3

REPORT INFORMATION
  Report Type: 
  Country: None (occurrence: None)
  Receive Date: 20080924
  Receipt Date: 20080724
  Transmission Date: 20090109
  Serious: Yes (Other)
  Sender: FDA-Public Use
  Company Number: PHEH2008US06647

PATIENT
  Sex: Female

DRUGS (2)
  1. COMBIPATCH [Suspect]
     Indication: MENOPAUSE
  2. PREMPRO [Suspect]
     Indication: MENOPAUSE

REACTIONS (13)
  - ANXIETY [None]
  - BIOPSY BREAST [None]
  - BREAST CANCER [None]
  - BREAST LUMP REMOVAL [None]
  - CHEMOTHERAPY [None]
  - EXPLORATORY OPERATION [None]
  - GENERAL PHYSICAL HEALTH DETERIORATION [None]
  - IMPAIRED WORK ABILITY [None]
  - MARITAL PROBLEM [None]
  - PAIN [None]
  - RADIOTHERAPY [None]
  - SCAR [None]
  - UNEVALUABLE EVENT [None]
